FAERS Safety Report 14567992 (Version 1)
Quarter: 2018Q1

REPORT INFORMATION
  Report Type: Spontaneous
  Country: NO (occurrence: NO)
  Receive Date: 20180223
  Receipt Date: 20180223
  Transmission Date: 20180509
  Serious: Yes (Other)
  Sender: FDA-Public Use
  Company Number: NO-MYLANLABS-2018M1012863

PATIENT
  Age: 9 Year
  Sex: Female

DRUGS (1)
  1. EPIPEN JR [Suspect]
     Active Substance: EPINEPHRINE
     Indication: FOOD ALLERGY
     Dosage: UNK, TOTAL
     Dates: start: 20180211, end: 20180211

REACTIONS (5)
  - Nausea [Recovering/Resolving]
  - Adverse reaction [Recovering/Resolving]
  - Expired product administered [Recovering/Resolving]
  - Headache [Recovering/Resolving]
  - Increased upper airway secretion [Recovering/Resolving]

NARRATIVE: CASE EVENT DATE: 20180211
